FAERS Safety Report 11886164 (Version 10)
Quarter: 2016Q3

REPORT INFORMATION
  Report Type: Spontaneous
  Country: US (occurrence: US)
  Receive Date: 20160104
  Receipt Date: 20160817
  Transmission Date: 20161109
  Serious: No
  Sender: FDA-Public Use
  Company Number: US-PFIZER INC-2015436507

PATIENT
  Age: 75 Year
  Sex: Female
  Weight: 61 kg

DRUGS (33)
  1. EXELON [Concomitant]
     Active Substance: RIVASTIGMINE TARTRATE
     Dosage: 4.6 MG, 1X/DAY
     Route: 062
     Dates: start: 20150728
  2. DIPHENHYDRAMINE/LIDOCAINE/NYSTATIN [Concomitant]
     Dosage: 0.2 9-1.6 9-1.6 G/237 ML
     Dates: start: 20151118
  3. CARBIDOPA-LEVODOPA [Concomitant]
     Active Substance: CARBIDOPA\LEVODOPA
     Dosage: UNK, 4X/DAY (CARBIDOPA-10 MG, LEVODOPA 10 MG-100 MG)
     Route: 048
  4. IBRANCE [Suspect]
     Active Substance: PALBOCICLIB
     Indication: BREAST CANCER STAGE II
     Dosage: 125 MG, CYCLIC (DAILY X 3 WEEKS ON WITH 1 WEEK OFF)
     Route: 048
     Dates: start: 20151117
  5. SINEMET [Concomitant]
     Active Substance: CARBIDOPA\LEVODOPA
     Dosage: UNK (CARBIDOPA 10MG-LEVODOPA 100MG )
  6. ACETAMINOPHEN W/HYDROCODONE [Concomitant]
     Active Substance: ACETAMINOPHEN\HYDROCODONE
     Dosage: UNK, AS NEEDED (HYDROCODONE 5MG-ACETAMINOPHEN 325MG )
     Route: 048
  7. IBRANCE [Suspect]
     Active Substance: PALBOCICLIB
     Dosage: 125 MG, CYCLIC (DAILY X 3 WKS WITH 1 WEEK OFF)
     Route: 048
     Dates: start: 20151123
  8. VITAMIN D2 [Concomitant]
     Active Substance: ERGOCALCIFEROL
     Dosage: 1.25 MG, (50,000 INTL UNITS (1.25 MG) ORAL CAPSULE 1 BI WEEKLY)
     Route: 048
     Dates: start: 20150728
  9. SIMVASTATIN. [Concomitant]
     Active Substance: SIMVASTATIN
     Dosage: 40 MG, 1X/DAY (40 MG ORAL TABLET 1 HS)
     Route: 048
     Dates: start: 20150728
  10. MECLIZINE HCL [Concomitant]
     Active Substance: MECLIZINE HYDROCHLORIDE
     Dosage: 25 MG, 3X/DAY
     Route: 048
     Dates: start: 20150728
  11. IRON [Concomitant]
     Active Substance: IRON
     Dosage: 150 MG, 1X/DAY
     Route: 048
     Dates: start: 20150728
  12. SENNA S [Concomitant]
     Active Substance: DOCUSATE SODIUM\SENNA LEAF
     Dosage: UNK, 2X/DAY (DOCUSATE SODIUM 50MG, SENNOSIDE A+B 8.6MG) 2 TABLETS ORALLY BID PRN
  13. FEMARA [Concomitant]
     Active Substance: LETROZOLE
     Indication: BREAST CANCER
     Dosage: 2.5 MG, DAILY
     Route: 048
     Dates: start: 20151104
  14. TYLENOL ARTHRITIS PAIN [Concomitant]
     Active Substance: ACETAMINOPHEN
     Dosage: 650 MG, (650 MG ORAL TABLET, EXTENDED RELEASE 2 Q 8H)
     Route: 048
     Dates: start: 20150728
  15. TOPROL XL [Concomitant]
     Active Substance: METOPROLOL SUCCINATE
     Dosage: 200 MG, 1X/DAY
     Route: 048
     Dates: start: 20150728
  16. PRILOSEC [Concomitant]
     Active Substance: OMEPRAZOLE MAGNESIUM
     Dosage: 40 MG, 1X/DAY
     Route: 048
     Dates: start: 20150728
  17. LEVOTHYROXINE SODIUM. [Concomitant]
     Active Substance: LEVOTHYROXINE SODIUM
     Dosage: 75 UG, 1X/DAY
     Route: 048
     Dates: start: 20150728
  18. ARIMIDEX [Concomitant]
     Active Substance: ANASTROZOLE
     Dosage: UNK
     Dates: start: 20070505
  19. PERCOCET [Concomitant]
     Active Substance: ACETAMINOPHEN\OXYCODONE HYDROCHLORIDE
     Dosage: UNK
  20. HYDROCODONE/ACETAMINOPHEN [Concomitant]
     Active Substance: ACETAMINOPHEN\HYDROCODONE
     Dosage: UNK, AS NEEDED Q 4H  (HYDROCODONE BITARTRATE 5 MG, PARACETAMOL 325 MG)
     Route: 048
  21. COUMADIN [Concomitant]
     Active Substance: WARFARIN SODIUM
     Indication: DEEP VEIN THROMBOSIS
     Dosage: 2 MG, 1X/DAY
     Route: 048
  22. IBRANCE [Suspect]
     Active Substance: PALBOCICLIB
     Dosage: 100 MG, CYCLIC (1 CAPSULE ORALLY QD (DAILY) 3 WEEKS ON WITH 1 WEEK OFF)
     Route: 048
  23. NITRO-DUR [Concomitant]
     Active Substance: NITROGLYCERIN
     Dosage: UNK UNK, 1X/DAY  (0.1 MG/HR TRANSDERMAL FILM, EXTENDED RELEASE)
     Route: 062
     Dates: start: 20150728
  24. COUMADIN [Concomitant]
     Active Substance: WARFARIN SODIUM
     Dosage: 1 MG, 1X/DAY (TAKE 1 OR 2 TABLETS BY MOUTH EVERY DAY AS DIRECTED)
     Route: 048
  25. MICRO-K [Concomitant]
     Active Substance: POTASSIUM CHLORIDE
     Dosage: 1DF, 2X/DAY (10 ORAL CAPSULE, EXTENDED RELEASE 1 BID)
     Route: 048
     Dates: start: 20150728
  26. ASPIRIN. [Concomitant]
     Active Substance: ASPIRIN
     Dosage: 325 MG, 1X/DAY
     Route: 048
     Dates: start: 20150728
  27. SINEMET [Concomitant]
     Active Substance: CARBIDOPA\LEVODOPA
     Dosage: UNK
  28. IBRANCE [Suspect]
     Active Substance: PALBOCICLIB
     Dosage: UNK
     Dates: start: 20160808
  29. VALTREX [Concomitant]
     Active Substance: VALACYCLOVIR HYDROCHLORIDE
     Dosage: 500 MG, 2X/DAY (500 MG ORAL TABLET 1 Q 12H)
     Route: 048
     Dates: start: 20150728
  30. CALCIUM CARBONATE. [Concomitant]
     Active Substance: CALCIUM CARBONATE
     Dosage: 500 MG, 3X/DAY
     Route: 048
     Dates: start: 20150728
  31. DIPHENHYDRAMINE/LIDOCAINE/NYSTATIN [Concomitant]
     Dosage: 10 ML, AS NEEDED (DIPHENHYDRAMINE-0.2G /LIDOCAINE-1.6G /NYSTATIN-237 ML ),SWISH/ SWALLOW AC + HSX7
  32. ARIMIDEX [Concomitant]
     Active Substance: ANASTROZOLE
     Dosage: 1 MG, 1X/DAY
     Route: 048
     Dates: start: 20150728
  33. ZOMETA [Concomitant]
     Active Substance: ZOLEDRONIC ACID
     Indication: OSTEOPOROSIS
     Dosage: UNK
     Dates: start: 20070628

REACTIONS (7)
  - Arthralgia [Recovering/Resolving]
  - Diarrhoea [Recovering/Resolving]
  - Urinary incontinence [Recovering/Resolving]
  - Fatigue [Unknown]
  - Lymphoedema [Unknown]
  - Mucosal inflammation [Unknown]
  - Blood count abnormal [Unknown]

NARRATIVE: CASE EVENT DATE: 20151204
